FAERS Safety Report 12380153 (Version 1)
Quarter: 2016Q2

REPORT INFORMATION
  Report Type: Spontaneous
  Country: None (occurrence: None)
  Receive Date: 20160517
  Receipt Date: 20160517
  Transmission Date: 20160815
  Serious: No
  Sender: FDA-Public Use
  Company Number: None

PATIENT
  Age: 27 Year
  Sex: Male
  Weight: 105.24 kg

DRUGS (4)
  1. BUPROPION XL [Concomitant]
     Active Substance: BUPROPION
  2. IBUPROFEN. [Concomitant]
     Active Substance: IBUPROFEN
  3. HYDROCODON-ACETAMINOPHEN 5-325, 5 MG MALLINCK [Suspect]
     Active Substance: ACETAMINOPHEN\HYDROCODONE
     Indication: PROCEDURAL PAIN
     Dosage: 30 TABLET(S) EVERY 4 HOURS TAKEN BY MOUTH
     Route: 048
  4. TRUVADA [Concomitant]
     Active Substance: EMTRICITABINE\TENOFOVIR DISOPROXIL FUMARATE

REACTIONS (1)
  - Nightmare [None]

NARRATIVE: CASE EVENT DATE: 20160515
